FAERS Safety Report 9752287 (Version 1)
Quarter: 2013Q4

REPORT INFORMATION
  Report Type: Spontaneous
  Country: GB (occurrence: None)
  Receive Date: 20131211
  Receipt Date: 20131211
  Transmission Date: 20140711
  Serious: Yes (Death, Other)
  Sender: FDA-Public Use
  Company Number: AUR-APL-2013-10106

PATIENT
  Age: 5 Month
  Sex: Female

DRUGS (2)
  1. CITALOPRAM (CITALOPRAM) [Suspect]
     Indication: DEPRESSION
     Route: 064
     Dates: start: 20040101
  2. CO-CODAMOL (PANADEINE CO) [Concomitant]

REACTIONS (6)
  - Maternal drugs affecting foetus [None]
  - Congenital diaphragmatic eventration [None]
  - Pulmonary hypoplasia [None]
  - Hand deformity [None]
  - Congenital cutis laxa [None]
  - Skin swelling [None]
